FAERS Safety Report 14602732 (Version 2)
Quarter: 2018Q1

REPORT INFORMATION
  Report Type: Spontaneous
  Country: US (occurrence: US)
  Receive Date: 20180306
  Receipt Date: 20180322
  Transmission Date: 20180509
  Serious: No
  Sender: FDA-Public Use
  Company Number: US-PFIZER INC-2018088420

PATIENT
  Age: 42 Year
  Sex: Male

DRUGS (1)
  1. BOSULIF [Suspect]
     Active Substance: BOSUTINIB MONOHYDRATE
     Indication: CHRONIC MYELOID LEUKAEMIA
     Dosage: 300 MG, DAILY, (ONLY TAKES 3 TABLETS PER DAY)
     Dates: start: 20171110

REACTIONS (2)
  - Full blood count decreased [Unknown]
  - Rash [Unknown]
